FAERS Safety Report 7347884-5 (Version None)
Quarter: 2011Q1

REPORT INFORMATION
  Report Type: 
  Country: None (occurrence: None)
  Receive Date: 20110311
  Receipt Date: 20110307
  Transmission Date: 20110831
  Serious: Yes (Life-Threatening, Hospitalization, Other)
  Sender: FDA-Public Use
  Company Number: JP-PFIZER INC-2011032668

PATIENT
  Age: 77 Year
  Sex: Male
  Weight: 53 kg

DRUGS (3)
  1. TAKEPRON [Suspect]
     Indication: PROPHYLAXIS AGAINST GASTROINTESTINAL ULCER
     Dosage: UNK
     Route: 048
     Dates: start: 20101008, end: 20110216
  2. VANCOMYCIN HCL [Suspect]
     Indication: STAPHYLOCOCCAL INFECTION
     Dosage: 1000 MG, 1X/DAY
     Route: 042
     Dates: start: 20110211, end: 20110302
  3. ZYVOX [Suspect]
     Indication: ARTHRITIS BACTERIAL
     Dosage: 600 MG, 2X/DAY
     Route: 065
     Dates: start: 20110203, end: 20110210

REACTIONS (2)
  - PLATELET COUNT DECREASED [None]
  - HAEMORRHAGE [None]
